FAERS Safety Report 5002269-1 (Version None)
Quarter: 2006Q2

REPORT INFORMATION
  Report Type: 
  Country: None (occurrence: None)
  Receive Date: 20060512
  Receipt Date: 20060502
  Transmission Date: 20061013
  Serious: Yes (Hospitalization, Disabling)
  Sender: FDA-Public Use
  Company Number: GXKR2006GB01386

PATIENT
  Age: 9 Year
  Sex: Female
  Weight: 38.2 kg

DRUGS (3)
  1. ERYTHROCIN STEARATE [Suspect]
     Indication: LOWER RESPIRATORY TRACT INFECTION
     Dosage: 20 ML, ORAL
     Route: 048
     Dates: start: 20060127, end: 20060127
  2. AMOXICILLIN [Suspect]
     Indication: LOWER RESPIRATORY TRACT INFECTION
     Dosage: 20 ML, ORAL
     Route: 048
     Dates: start: 20060124, end: 20060127
  3. ACETAMINOPHEN [Concomitant]

REACTIONS (7)
  - APHAGIA [None]
  - CHAPPED LIPS [None]
  - CONJUNCTIVITIS [None]
  - HAEMATOCHEZIA [None]
  - HAEMOPTYSIS [None]
  - MELAENA [None]
  - SWELLING FACE [None]
